FAERS Safety Report 17782913 (Version 13)
Quarter: 2023Q4

REPORT INFORMATION
  Report Type: Report from Study
  Country: AR (occurrence: AR)
  Receive Date: 20200513
  Receipt Date: 20231117
  Transmission Date: 20240109
  Serious: Yes (Other)
  Sender: FDA-Public Use
  Company Number: NVSC2019AR001593

PATIENT
  Age: 66 Year
  Sex: Female

DRUGS (3)
  1. COSENTYX [Suspect]
     Active Substance: SECUKINUMAB
     Indication: Psoriatic arthropathy
     Dosage: 300 MG, QMO
     Route: 058
     Dates: start: 20191001
  2. COSENTYX [Suspect]
     Active Substance: SECUKINUMAB
     Dosage: 300 MG, QMO
     Route: 058
  3. COSENTYX [Suspect]
     Active Substance: SECUKINUMAB
     Dosage: 300 MG, QMO
     Route: 058

REACTIONS (31)
  - Infarction [Recovering/Resolving]
  - Renal injury [Recovering/Resolving]
  - Metastases to bone [Unknown]
  - Neoplasm malignant [Unknown]
  - Aortic aneurysm [Unknown]
  - Renal cancer [Unknown]
  - Penetrating aortic ulcer [Unknown]
  - Lung neoplasm malignant [Unknown]
  - Memory impairment [Unknown]
  - Pain in extremity [Unknown]
  - Tachycardia [Unknown]
  - Weight decreased [Not Recovered/Not Resolved]
  - Decreased appetite [Unknown]
  - Cardiac disorder [Unknown]
  - Influenza [Unknown]
  - Cough [Unknown]
  - Pyrexia [Unknown]
  - Ulcer [Unknown]
  - Chest pain [Unknown]
  - Back pain [Unknown]
  - Nasopharyngitis [Unknown]
  - Arthralgia [Unknown]
  - Pain [Unknown]
  - Osteoarthritis [Unknown]
  - Muscle spasms [Unknown]
  - Fatigue [Unknown]
  - Product use issue [Unknown]
  - Hypotension [Unknown]
  - Chest discomfort [Unknown]
  - Aortic disorder [Unknown]
  - Abdominal discomfort [Unknown]

NARRATIVE: CASE EVENT DATE: 20191001
